FAERS Safety Report 5614436-4 (Version None)
Quarter: 2008Q1

REPORT INFORMATION
  Report Type: 
  Country: None (occurrence: None)
  Receive Date: 20080205
  Receipt Date: 20080129
  Transmission Date: 20080703
  Serious: Yes (Other)
  Sender: FDA-Public Use
  Company Number: US-GENENTECH-251190

PATIENT
  Sex: Female

DRUGS (1)
  1. XOLAIR [Suspect]
     Indication: ASTHMA
     Dosage: 150 MG, 2/MONTH
     Route: 058
     Dates: start: 20040101, end: 20071019

REACTIONS (3)
  - DYSPNOEA [None]
  - RASH [None]
  - THROAT TIGHTNESS [None]
